FAERS Safety Report 18359871 (Version 2)
Quarter: 2020Q4

REPORT INFORMATION
  Report Type: Spontaneous
  Country: US (occurrence: US)
  Receive Date: 20201008
  Receipt Date: 20201109
  Transmission Date: 20210114
  Serious: No
  Sender: FDA-Public Use
  Company Number: US-ASTRAZENECA-2020SF26670

PATIENT
  Age: 20465 Day
  Sex: Female

DRUGS (4)
  1. BYDUREON BCISE [Suspect]
     Active Substance: EXENATIDE
     Indication: ILL-DEFINED DISORDER
     Route: 058
     Dates: start: 20190510
  2. LANTUS BASAGLAR [Concomitant]
  3. BYDUREON BCISE [Suspect]
     Active Substance: EXENATIDE
     Indication: INSULIN RESISTANCE
     Route: 058
     Dates: start: 20190510
  4. HUMALIN R INSULIN [Concomitant]

REACTIONS (5)
  - Injection site extravasation [Unknown]
  - Product dose omission issue [Unknown]
  - Device issue [Unknown]
  - Insurance issue [Unknown]
  - Injection site haemorrhage [Unknown]

NARRATIVE: CASE EVENT DATE: 20190510
